FAERS Safety Report 24317491 (Version 1)
Quarter: 2024Q3

REPORT INFORMATION
  Report Type: Spontaneous
  Country: FR (occurrence: FR)
  Receive Date: 20240913
  Receipt Date: 20240913
  Transmission Date: 20241016
  Serious: Yes (Hospitalization)
  Sender: TEVA
  Company Number: None

PATIENT
  Age: 50 Year
  Sex: Female

DRUGS (9)
  1. ALMOTRIPTAN [Suspect]
     Active Substance: ALMOTRIPTAN
     Indication: Migraine
     Dosage: 12.5 MG AT THE START OF THE CRISIS (7 TABS / MONTH ON AVERAGE), ALMOTRIPTAN BASE
     Route: 048
     Dates: start: 20211011, end: 20240729
  2. PROPRANOLOL [Concomitant]
     Active Substance: PROPRANOLOL HYDROCHLORIDE
     Indication: Product used for unknown indication
     Route: 065
  3. ZOPICLONE [Concomitant]
     Active Substance: ZOPICLONE
     Indication: Product used for unknown indication
     Route: 065
  4. ARIPIPRAZOLE [Concomitant]
     Active Substance: ARIPIPRAZOLE
     Indication: Product used for unknown indication
     Route: 065
  5. NASACORT [Concomitant]
     Active Substance: TRIAMCINOLONE ACETONIDE
     Indication: Product used for unknown indication
     Dosage: 55 MICROGRAMS PER DOSE
     Route: 065
  6. LAMOTRIGINE [Concomitant]
     Active Substance: LAMOTRIGINE
     Indication: Product used for unknown indication
     Route: 065
  7. SERTRALINE [Suspect]
     Active Substance: SERTRALINE HYDROCHLORIDE
     Indication: Major depression
     Dosage: 200 MG/D, SERTRALINE BASE
     Route: 048
     Dates: start: 202109, end: 202408
  8. CANDESARTAN CILEXETIL [Concomitant]
     Active Substance: CANDESARTAN CILEXETIL
     Indication: Product used for unknown indication
     Route: 065
  9. KETOPROFEN [Concomitant]
     Active Substance: KETOPROFEN
     Indication: Product used for unknown indication
     Route: 065

REACTIONS (1)
  - Reversible cerebral vasoconstriction syndrome [Recovered/Resolved]

NARRATIVE: CASE EVENT DATE: 20240729
